FAERS Safety Report 7082140-4 (Version None)
Quarter: 2010Q4

REPORT INFORMATION
  Report Type: 
  Country: None (occurrence: None)
  Receive Date: 20101103
  Receipt Date: 20101022
  Transmission Date: 20110411
  Serious: Yes (Hospitalization)
  Sender: FDA-Public Use
  Company Number: JP-GILEAD-2010-0032947

PATIENT
  Age: 61 Year
  Sex: Male

DRUGS (7)
  1. TRUVADA [Suspect]
     Indication: HIV INFECTION
     Route: 048
     Dates: start: 20080814
  2. NORVIR [Suspect]
     Indication: HIV INFECTION
     Route: 048
     Dates: start: 20080814
  3. LEXIVA [Suspect]
     Indication: HIV INFECTION
     Route: 048
     Dates: start: 20080814
  4. METHADERM [Concomitant]
     Indication: HIV INFECTION
     Dates: start: 20080619
  5. HIRUDOID [Concomitant]
     Dates: start: 20080619
  6. MENTAX [Concomitant]
     Dates: start: 20080717
  7. ANTEBATE [Concomitant]
     Dates: start: 20080305

REACTIONS (1)
  - GASTROINTESTINAL CARCINOMA [None]
